FAERS Safety Report 4680505-9 (Version None)
Quarter: 2005Q2

REPORT INFORMATION
  Report Type: 
  Country: None (occurrence: None)
  Receive Date: 20050601
  Receipt Date: 20050511
  Transmission Date: 20051028
  Serious: Yes (Death, Other)
  Sender: FDA-Public Use
  Company Number: JP_050506492

PATIENT
  Age: 52 Year
  Sex: Male
  Weight: 45 kg

DRUGS (12)
  1. ZYPREXA [Suspect]
     Indication: SCHIZOPHRENIA
     Dosage: 10 MG DAY
     Dates: start: 20050423, end: 20050428
  2. LORAZEPAM [Concomitant]
  3. CHLORPROMAZINE [Concomitant]
  4. LULLAN (PEROSPIRONE HYDROCHLORIDE) [Concomitant]
  5. LASIX [Concomitant]
  6. LEVOMEPROMAZINE [Concomitant]
  7. LITHIUM [Concomitant]
  8. PHENOBARBITAL TAB [Concomitant]
  9. FLUNITRAZEPAM [Concomitant]
  10. BROTIZOLAM [Concomitant]
  11. TRIAZOLAM [Concomitant]
  12. PROPERICIAZINE (PERICIAZINE) [Concomitant]

REACTIONS (16)
  - ANURIA [None]
  - BLOOD PRESSURE DECREASED [None]
  - BLOOD PRESSURE INADEQUATELY CONTROLLED [None]
  - CONDITION AGGRAVATED [None]
  - DEPRESSED LEVEL OF CONSCIOUSNESS [None]
  - HEART RATE DECREASED [None]
  - HEPATIC FAILURE [None]
  - HYPERAMMONAEMIA [None]
  - IMMUNODEFICIENCY [None]
  - MOUTH BREATHING [None]
  - ORAL INTAKE REDUCED [None]
  - PANCYTOPENIA [None]
  - PSYCHIATRIC SYMPTOM [None]
  - PYREXIA [None]
  - RENAL FAILURE [None]
  - SEPSIS [None]
